FAERS Safety Report 7858434-9 (Version None)
Quarter: 2011Q4

REPORT INFORMATION
  Report Type: 
  Country: None (occurrence: None)
  Receive Date: 20111027
  Receipt Date: 20111005
  Transmission Date: 20120403
  Serious: Yes (Hospitalization)
  Sender: FDA-Public Use
  Company Number: CA-JNJFOC-20110904849

PATIENT
  Sex: Female
  Weight: 76.7 kg

DRUGS (3)
  1. REMICADE [Suspect]
     Indication: CROHN'S DISEASE
     Route: 042
     Dates: start: 20110301
  2. GRAVOL TAB [Concomitant]
     Route: 048
  3. VENLAFAXINE [Concomitant]
     Route: 065

REACTIONS (1)
  - RECTAL PROLAPSE [None]
